FAERS Safety Report 20119582 (Version 1)
Quarter: 2021Q4

REPORT INFORMATION
  Report Type: Spontaneous
  Country: JP (occurrence: JP)
  Receive Date: 20211126
  Receipt Date: 20211126
  Transmission Date: 20220304
  Serious: Yes (Death, Life-Threatening, Hospitalization, Other)
  Sender: FDA-Public Use
  Company Number: JP-LUPIN PHARMACEUTICALS INC.-2021-22869

PATIENT
  Age: 69 Year
  Sex: Male

DRUGS (1)
  1. ROSUVASTATIN [Suspect]
     Active Substance: ROSUVASTATIN
     Indication: Dyslipidaemia
     Dosage: UNK
     Route: 065

REACTIONS (7)
  - Interstitial lung disease [Fatal]
  - Endocarditis [Fatal]
  - Respiratory failure [Fatal]
  - Pericarditis [Fatal]
  - Diffuse alveolar damage [Fatal]
  - Immune-mediated myositis [Fatal]
  - Cardiac failure [Fatal]
